FAERS Safety Report 5764112-2 (Version None)
Quarter: 2008Q2

REPORT INFORMATION
  Report Type: 
  Country: None (occurrence: None)
  Receive Date: 20080609
  Receipt Date: 20070326
  Transmission Date: 20081010
  Serious: No
  Sender: FDA-Public Use
  Company Number: 002#2#2008-00193

PATIENT
  Sex: Female

DRUGS (2)
  1. NEUPRO [Suspect]
     Dosage: MG/24TH, , TRANSDERMAL
     Route: 062
  2. SEROQUEL [Concomitant]

REACTIONS (2)
  - DRUG INEFFECTIVE [None]
  - HALLUCINATION [None]
